FAERS Safety Report 8302893-4 (Version None)
Quarter: 2012Q2

REPORT INFORMATION
  Report Type: 
  Country: None (occurrence: None)
  Receive Date: 20120420
  Receipt Date: 20120412
  Transmission Date: 20120825
  Serious: Yes (Other)
  Sender: FDA-Public Use
  Company Number: US-PFIZER INC-2012059337

PATIENT
  Sex: Female
  Weight: 82 kg

DRUGS (7)
  1. LIPITOR [Suspect]
     Indication: CARDIAC DISORDER
     Dosage: 60 MG, ALTERNATE DAY
  2. METOPROLOL TARTRATE [Suspect]
     Dosage: UNK
  3. ASPIRIN [Concomitant]
     Dosage: UNK
  4. LIPITOR [Suspect]
     Indication: BLOOD CHOLESTEROL ABNORMAL
     Dosage: 40 MG, ALTERNATE DAY
  5. CALCIUM [Concomitant]
     Dosage: UNK
  6. LEVOTHYROXINE [Concomitant]
     Indication: THYROID DISORDER
     Dosage: 100 UG, DAILY
  7. VITAMIN D [Concomitant]
     Dosage: UNK

REACTIONS (2)
  - POLLAKIURIA [None]
  - MEMORY IMPAIRMENT [None]
